FAERS Safety Report 6635598 (Version 6)
Quarter: 2018Q3

REPORT INFORMATION
  Report Type: Spontaneous
  Country: NL (occurrence: NL)
  Receive Date: 20080422
  Receipt Date: 20180827
  Transmission Date: 20181010
  Serious: Yes (Hospitalization, Other)
  Sender: FDA-Public Use
  Company Number: GXKR2008NL03428

PATIENT
  Age: 30 Year
  Sex: Female

DRUGS (4)
  1. PROGRAFT [Suspect]
     Active Substance: TACROLIMUS
     Indication: IMMUNOSUPPRESSION
     Dosage: CONCOMITANT DRUG: NOT REPORTED
     Route: 065
  2. IMURAN [Suspect]
     Active Substance: AZATHIOPRINE
     Indication: IMMUNOSUPPRESSION
     Dosage: CONCOMITANT DRUG: NOT REPORTED
     Route: 065
  3. SANDIMMUN NEORAL [Suspect]
     Active Substance: CYCLOSPORINE
     Indication: IMMUNOSUPPRESSION
     Dosage: 1 DF, UNK
     Route: 065
  4. PREDNISOLONE SANDOZ [Suspect]
     Active Substance: PREDNISOLONE
     Indication: IMMUNOSUPPRESSION
     Route: 065

REACTIONS (9)
  - Hepatitis E [Recovered/Resolved]
  - Liver function test abnormal [Recovering/Resolving]
  - Jaundice [Recovering/Resolving]
  - Hepatic fibrosis [Recovering/Resolving]
  - Oesophageal varices haemorrhage [Recovering/Resolving]
  - Herpes zoster [Recovering/Resolving]
  - Colitis ulcerative [Recovering/Resolving]
  - Hepatic cirrhosis [Recovering/Resolving]
  - Ascites [Recovering/Resolving]

NARRATIVE: CASE EVENT DATE: 19990412
